FAERS Safety Report 9908983 (Version 1)
Quarter: 2014Q1

REPORT INFORMATION
  Report Type: Spontaneous
  Country: US (occurrence: None)
  Receive Date: 20140214
  Receipt Date: 20140214
  Transmission Date: 20141002
  Serious: Yes (Death)
  Sender: FDA-Public Use
  Company Number: AUR-APL-2014-01232

PATIENT
  Age: 74 Year
  Sex: Male

DRUGS (10)
  1. ATENOLOL [Suspect]
  2. FLUOXETINE [Suspect]
  3. HYDROCHLOROTHIAZIDE [Suspect]
  4. LISINOPRIL(LISINOPRIL) [Suspect]
  5. METFORMIN [Suspect]
  6. DILTIAZEM [Suspect]
  7. GLIPIZIDE [Suspect]
  8. OMEPRAZOLE(OMEPRAZOLE) [Suspect]
  9. PIOGLITAZONE [Suspect]
  10. ROSUVASTATIN [Suspect]

REACTIONS (3)
  - Completed suicide [None]
  - Exposure via ingestion [None]
  - Toxicity to various agents [None]
